FAERS Safety Report 13351724 (Version 1)
Quarter: 2017Q1

REPORT INFORMATION
  Report Type: Spontaneous
  Country: US (occurrence: US)
  Receive Date: 20170320
  Receipt Date: 20170320
  Transmission Date: 20170429
  Serious: Yes (Other)
  Sender: FDA-Public Use
  Company Number: None

PATIENT
  Age: 74 Year
  Sex: Male
  Weight: 79.45 kg

DRUGS (10)
  1. FLOMAX [Concomitant]
     Active Substance: TAMSULOSIN HYDROCHLORIDE
  2. OMEGA 3 [Concomitant]
     Active Substance: OMEGA-3 FATTY ACIDS
  3. WALGREEN STERILE LUBRICANT [Suspect]
     Active Substance: PROPYLENE GLYCOL
     Indication: DRY EYE
     Dosage: ?          QUANTITY:1~2 DROPS IN EACH EYC;?
     Route: 031
     Dates: start: 201612, end: 201701
  4. NABUMETONE. [Concomitant]
     Active Substance: NABUMETONE
  5. MAGNESIUM [Concomitant]
     Active Substance: MAGNESIUM
  6. B-6 VITAMIN [Concomitant]
  7. CENTRUM SILVER [Concomitant]
     Active Substance: MINERALS\VITAMINS
  8. ALEVE [Concomitant]
     Active Substance: NAPROXEN SODIUM
  9. ALFUZOSIN [Concomitant]
     Active Substance: ALFUZOSIN
  10. OMEPRAZOLE. [Concomitant]
     Active Substance: OMEPRAZOLE

REACTIONS (2)
  - Product quality issue [None]
  - Eye irritation [None]
